FAERS Safety Report 5968888-0 (Version None)
Quarter: 2008Q4

REPORT INFORMATION
  Report Type: 
  Country: None (occurrence: None)
  Receive Date: 20081125
  Receipt Date: 20081125
  Transmission Date: 20090506
  Serious: Yes (Other)
  Sender: FDA-Public Use
  Company Number: None

PATIENT
  Sex: Male
  Weight: 59.6 kg

DRUGS (2)
  1. CLOFARABINE 20MG/VIAL [Suspect]
     Indication: LEUKAEMIA RECURRENT
     Dosage: 20MG/M2 D1-5 IV
     Route: 042
     Dates: start: 20081106, end: 20081110
  2. GEMTUZUMAB OZOGAMICIN 5 MG VIAL [Suspect]
     Indication: LEUKAEMIA RECURRENT
     Dosage: 3MG/M2 D1, 4, 7 IV
     Route: 042
     Dates: start: 20081106, end: 20081112

REACTIONS (3)
  - CAECITIS [None]
  - NEUTROPENIA [None]
  - THROMBOCYTOPENIA [None]
